FAERS Safety Report 8771607 (Version 1)
Quarter: 2012Q4

REPORT INFORMATION
  Report Type: 
  Country: AR (occurrence: AR)
  Receive Date: 20120906
  Receipt Date: 20120906
  Transmission Date: 20130627
  Serious: Yes (Hospitalization)
  Sender: FDA-Public Use
  Company Number: AR-ACTELION-A-CH2012-70710

PATIENT
  Age: 28 Year
  Sex: Female

DRUGS (5)
  1. TRACLEER [Suspect]
     Indication: PULMONARY HYPERTENSION
     Dosage: 125 mg, bid
     Route: 048
  2. LEFLUNOMIDE [Suspect]
  3. ACENOCOUMAROL [Concomitant]
  4. SILDENAFIL [Concomitant]
  5. AZATHIOPRINE [Concomitant]

REACTIONS (5)
  - Pregnancy [Unknown]
  - Nausea [Unknown]
  - Vomiting [Unknown]
  - Abdominal pain [Unknown]
  - Bundle branch block right [Unknown]
